FAERS Safety Report 4859830-4 (Version None)
Quarter: 2005Q4

REPORT INFORMATION
  Report Type: 
  Country: None (occurrence: None)
  Receive Date: 20051219
  Receipt Date: 20051214
  Transmission Date: 20060501
  Serious: Yes (Hospitalization)
  Sender: FDA-Public Use
  Company Number: FR-GLAXOSMITHKLINE-B0403796A

PATIENT
  Age: 83 Year
  Sex: Male
  Weight: 80 kg

DRUGS (9)
  1. AUGMENTIN [Suspect]
     Dosage: 1G THREE TIMES PER DAY
     Route: 048
     Dates: start: 20051115, end: 20051119
  2. IBUPROFEN [Suspect]
     Dosage: 300MG PER DAY
     Route: 048
     Dates: start: 20051115, end: 20051119
  3. PARACETAMOL [Suspect]
     Dosage: 1G THREE TIMES PER DAY
     Route: 048
     Dates: start: 20051115, end: 20051119
  4. SINEMET CR [Concomitant]
     Route: 065
  5. CIPRALAN [Concomitant]
     Route: 065
  6. DEPAKENE [Concomitant]
     Route: 065
  7. RIVOTRIL [Concomitant]
     Route: 065
  8. AMLOR [Concomitant]
     Route: 065
  9. XALATAN [Concomitant]
     Route: 065

REACTIONS (9)
  - ERYTHEMA [None]
  - LYMPHADENOPATHY [None]
  - OEDEMA GENITAL [None]
  - OEDEMA PERIPHERAL [None]
  - PRURIGO [None]
  - PURPURA [None]
  - PYREXIA [None]
  - RASH [None]
  - RASH MACULAR [None]
